FAERS Safety Report 24794849 (Version 2)
Quarter: 2025Q1

REPORT INFORMATION
  Report Type: Spontaneous
  Country: ES (occurrence: ES)
  Receive Date: 20241231
  Receipt Date: 20250108
  Transmission Date: 20250409
  Serious: Yes (Hospitalization, Other)
  Sender: OTSUKA
  Company Number: None

PATIENT
  Age: 48 Year
  Sex: Female

DRUGS (3)
  1. ARIPIPRAZOLE [Interacting]
     Active Substance: ARIPIPRAZOLE
     Indication: Depression
     Dosage: 5 MG, QD
     Route: 048
     Dates: start: 20240301, end: 20240408
  2. RANOLAZINE [Interacting]
     Active Substance: RANOLAZINE
     Indication: Angina pectoris
     Dosage: 375 MG, BID (12 HOURS)
     Route: 048
     Dates: start: 20210601, end: 20240530
  3. DULOXETINE [Interacting]
     Active Substance: DULOXETINE
     Indication: Depression
     Dosage: 60 MG, QD
     Route: 048
     Dates: start: 2021, end: 20240507

REACTIONS (3)
  - Hallucinations, mixed [Recovered/Resolved]
  - Product use in unapproved indication [Unknown]
  - Drug interaction [Unknown]

NARRATIVE: CASE EVENT DATE: 20240301
